FAERS Safety Report 23339203 (Version 1)
Quarter: 2023Q4

REPORT INFORMATION
  Report Type: Spontaneous
  Country: CN (occurrence: CN)
  Receive Date: 20231226
  Receipt Date: 20231226
  Transmission Date: 20240110
  Serious: Yes (Life-Threatening, Other)
  Sender: FDA-Public Use
  Company Number: CN-PFIZER INC-202300449213

PATIENT
  Age: 63 Year
  Sex: Female

DRUGS (8)
  1. MEROPENEM [Suspect]
     Active Substance: MEROPENEM
     Indication: Necrosis
     Dosage: UNK
  2. MEROPENEM [Suspect]
     Active Substance: MEROPENEM
     Indication: Fungal infection
  3. DAPTOMYCIN [Suspect]
     Active Substance: DAPTOMYCIN
     Indication: Fungal infection
     Dosage: UNK
  4. DAPTOMYCIN [Suspect]
     Active Substance: DAPTOMYCIN
     Indication: Necrosis
  5. VANCOMYCIN [Suspect]
     Active Substance: VANCOMYCIN
     Indication: Ulcer
     Dosage: UNK
  6. POSACONAZOLE [Concomitant]
     Active Substance: POSACONAZOLE
     Indication: Skin ulcer
     Dosage: 300 MG, DAILY
     Route: 048
  7. POSACONAZOLE [Concomitant]
     Active Substance: POSACONAZOLE
     Dosage: 200 MG, DAILY
     Route: 048
  8. POSACONAZOLE [Concomitant]
     Active Substance: POSACONAZOLE
     Dosage: UNK
     Route: 061

REACTIONS (1)
  - Drug ineffective [Unknown]
